FAERS Safety Report 4973906-2 (Version None)
Quarter: 2006Q2

REPORT INFORMATION
  Report Type: 
  Country: None (occurrence: None)
  Receive Date: 20060410
  Receipt Date: 20060329
  Transmission Date: 20061013
  Serious: Yes (Death, Life-Threatening, Hospitalization)
  Sender: FDA-Public Use
  Company Number: HQWYE584526APR04

PATIENT
  Age: 69 Year
  Sex: Male
  Weight: 125.3 kg

DRUGS (4)
  1. MYLOTARG [Suspect]
     Indication: ACUTE MYELOID LEUKAEMIA
     Dosage: 21 MG 1X PER 1 DAY, INTRAVENOUS
     Route: 042
     Dates: start: 20040421, end: 20040421
  2. DIPHENHYDRAMINE HCL [Concomitant]
  3. ACETAMINOPHEN [Concomitant]
  4. SOLU-MEDROL [Concomitant]

REACTIONS (22)
  - ASCITES [None]
  - ATELECTASIS [None]
  - CHILLS [None]
  - CHOLELITHIASIS [None]
  - DRY MOUTH [None]
  - DYSPNOEA [None]
  - FAILURE TO THRIVE [None]
  - FATIGUE [None]
  - FEELING ABNORMAL [None]
  - HEADACHE [None]
  - ILEUS PARALYTIC [None]
  - INFUSION RELATED REACTION [None]
  - LEUKOPENIA [None]
  - LUNG CONSOLIDATION [None]
  - MALAISE [None]
  - MULTI-ORGAN FAILURE [None]
  - PLEURAL EFFUSION [None]
  - PNEUMONIA [None]
  - PORTAL VEIN THROMBOSIS [None]
  - RENAL FAILURE ACUTE [None]
  - RESPIRATORY FAILURE [None]
  - VENOOCCLUSIVE LIVER DISEASE [None]
